FAERS Safety Report 4870924-X (Version None)
Quarter: 2005Q4

REPORT INFORMATION
  Report Type: 
  Country: None (occurrence: None)
  Receive Date: 20051228
  Receipt Date: 20051212
  Transmission Date: 20060501
  Serious: Yes (Hospitalization, Other)
  Sender: FDA-Public Use
  Company Number: JP_040402960

PATIENT
  Age: 58 Year
  Sex: Male
  Weight: 72.8 kg

DRUGS (8)
  1. GEMZAR [Suspect]
     Indication: NON-SMALL CELL LUNG CANCER RECURRENT
     Dosage: 1350 MG, OTHER, INTRAVENOUS
     Route: 042
     Dates: start: 20021202, end: 20030114
  2. DOCETAXEL (DOCETAXEL) [Concomitant]
  3. HARNAL (TAMSULOSIN HYDROCHLORIDE) [Concomitant]
  4. ACTOS [Concomitant]
  5. AMARYL [Concomitant]
  6. MAGNESIUM OXIDE (MAGNESIUM OXIDE) [Concomitant]
  7. CODEINE PHOSPHATE (CODEINE PHOSPHATE) [Concomitant]
  8. MEDICON (DEXTROMETHORPHAN HYDROBROMIDE) [Concomitant]

REACTIONS (8)
  - DYSPNOEA [None]
  - FEBRILE NEUTROPENIA [None]
  - INFECTION [None]
  - INFLUENZA [None]
  - INTERSTITIAL LUNG DISEASE [None]
  - NASOPHARYNGITIS [None]
  - OXYGEN SATURATION DECREASED [None]
  - STRIDOR [None]
